FAERS Safety Report 10505774 (Version 1)
Quarter: 2014Q4

REPORT INFORMATION
  Report Type: Spontaneous
  Country: IT (occurrence: IT)
  Receive Date: 20141008
  Receipt Date: 20141008
  Transmission Date: 20150528
  Serious: Yes (Other)
  Sender: FDA-Public Use
  Company Number: PHHY2014IT128445

PATIENT
  Age: 45 Year
  Sex: Male

DRUGS (1)
  1. PAROXETINE [Suspect]
     Active Substance: PAROXETINE\PAROXETINE HYDROCHLORIDE
     Indication: MAJOR DEPRESSION
     Dosage: 20 MG, QD

REACTIONS (10)
  - Memory impairment [Unknown]
  - Burning sensation [Recovering/Resolving]
  - Impulsive behaviour [Recovering/Resolving]
  - Visual impairment [Recovering/Resolving]
  - Aggression [Recovering/Resolving]
  - Pathological gambling [Recovered/Resolved]
  - Anxiety [Recovering/Resolving]
  - Insomnia [Recovering/Resolving]
  - Drug withdrawal syndrome [Recovering/Resolving]
  - Nervousness [Unknown]
